FAERS Safety Report 18080240 (Version 1)
Quarter: 2020Q3

REPORT INFORMATION
  Report Type: Spontaneous
  Country: US (occurrence: US)
  Receive Date: 20200728
  Receipt Date: 20200728
  Transmission Date: 20201103
  Serious: Yes (Hospitalization)
  Sender: FDA-Public Use
  Company Number: US-MYLANLABS-2020M1067467

PATIENT
  Age: 40 Year
  Sex: Female

DRUGS (1)
  1. EPTIFIBATIDE. [Suspect]
     Active Substance: EPTIFIBATIDE
     Indication: THROMBOSIS
     Dosage: 15 MILLIGRAM
     Route: 042

REACTIONS (1)
  - Drug ineffective [Unknown]
